FAERS Safety Report 17438372 (Version 1)
Quarter: 2020Q1

REPORT INFORMATION
  Report Type: Spontaneous
  Country: GB (occurrence: GB)
  Receive Date: 20200220
  Receipt Date: 20200220
  Transmission Date: 20200409
  Serious: Yes (Life-Threatening, Disabling, Other)
  Sender: FDA-Public Use
  Company Number: GB-TEVA-2020-GB-1188141

PATIENT
  Age: 49 Year
  Sex: Female

DRUGS (18)
  1. CETIRIZINE [Concomitant]
     Active Substance: CETIRIZINE HYDROCHLORIDE
     Indication: NAUSEA
     Route: 058
  2. PREMARIN [Concomitant]
     Active Substance: ESTROGENS, CONJUGATED
     Dosage: 0.63 MG
  3. BIOTENE DRY MOUTH [Concomitant]
  4. HYDROCORTISONE. [Suspect]
     Active Substance: HYDROCORTISONE
     Indication: ASTHMA
     Dosage: 200 MG
     Route: 048
     Dates: start: 201902
  5. LEVOTHYROXINE. [Concomitant]
     Active Substance: LEVOTHYROXINE
     Indication: HYPOTHYROIDISM
     Dosage: 25 MCG
  6. SEVREDOL [Concomitant]
     Active Substance: MORPHINE
     Indication: PAIN
     Dosage: 10 MG AS NEEDED
  7. DIAZEPAM. [Concomitant]
     Active Substance: DIAZEPAM
     Indication: EMOTIONAL DISTRESS
     Dosage: 5 MG AS NEEDED
  8. ZOLMITRIPTAN. [Concomitant]
     Active Substance: ZOLMITRIPTAN
     Indication: MIGRAINE
  9. PARACETAMOL [Concomitant]
     Active Substance: ACETAMINOPHEN
  10. FLUTIFORM [Concomitant]
     Active Substance: FLUTICASONE PROPIONATE\FORMOTEROL FUMARATE
     Dosage: 4 DOSAGE FORMS
     Route: 055
  11. UNIPHYLLIN CONTINUS [Concomitant]
     Active Substance: THEOPHYLLINE ANHYDROUS
     Dosage: 2 DOSAGE FORMS
  12. IBUPROFEN. [Concomitant]
     Active Substance: IBUPROFEN
  13. VENTOLIN [Concomitant]
     Active Substance: ALBUTEROL SULFATE
     Dosage: 2.5 MG AND 5 MG
  14. PANTOPRAZOLE [Concomitant]
     Active Substance: PANTOPRAZOLE
     Dosage: 40 MG
  15. ATROVENT [Concomitant]
     Active Substance: IPRATROPIUM BROMIDE
     Dosage: 1500 MCG
  16. CYCLIZINE [Concomitant]
     Active Substance: CYCLIZINE
  17. CICLESONIDE [Concomitant]
     Active Substance: CICLESONIDE
     Dosage: 2 DOSAGE FORMS
     Route: 055
  18. DOCUSATE SODIUM. [Concomitant]
     Active Substance: DOCUSATE SODIUM

REACTIONS (9)
  - Mood altered [Unknown]
  - Suicidal ideation [Not Recovered/Not Resolved]
  - Suicidal behaviour [Not Recovered/Not Resolved]
  - Paranoia [Not Recovered/Not Resolved]
  - Suicidal ideation [Not Recovered/Not Resolved]
  - Mania [Unknown]
  - Psychotic disorder [Unknown]
  - Hypomania [Unknown]
  - Depression suicidal [Not Recovered/Not Resolved]

NARRATIVE: CASE EVENT DATE: 201902
